FAERS Safety Report 16103226 (Version 2)
Quarter: 2019Q2

REPORT INFORMATION
  Report Type: Spontaneous
  Country: US (occurrence: US)
  Receive Date: 20190322
  Receipt Date: 20190513
  Transmission Date: 20190711
  Serious: No
  Sender: FDA-Public Use
  Company Number: US-JNJFOC-20190300075

PATIENT
  Age: 51 Year
  Sex: Female
  Weight: 87.09 kg

DRUGS (2)
  1. IMODIUM A-D [Suspect]
     Active Substance: LOPERAMIDE HYDROCHLORIDE
     Indication: IRRITABLE BOWEL SYNDROME
     Dosage: 30 ML AFTER 1ST LOOSE STOOL AND 15 ML AFTER EACH LOOSE STOOL AFTER 1ST DOSE
     Route: 048
  2. IMODIUM A-D [Suspect]
     Active Substance: LOPERAMIDE HYDROCHLORIDE
     Route: 048

REACTIONS (3)
  - Product quality issue [Unknown]
  - Gastric disorder [Not Recovered/Not Resolved]
  - Medication error [Unknown]

NARRATIVE: CASE EVENT DATE: 200404
